FAERS Safety Report 5630628-2 (Version None)
Quarter: 2008Q1

REPORT INFORMATION
  Report Type: 
  Country: None (occurrence: None)
  Receive Date: 20080214
  Receipt Date: 20080206
  Transmission Date: 20080703
  Serious: Yes (Hospitalization)
  Sender: FDA-Public Use
  Company Number: 2008003310

PATIENT
  Age: 62 Year
  Sex: Female

DRUGS (2)
  1. BENADRYL [Suspect]
     Indication: HYPERSENSITIVITY
     Dosage: 2 TABLETS ONE TIME ONLY, ORAL
     Route: 048
     Dates: start: 20060815, end: 20060815
  2. ZESTRIL [Concomitant]

REACTIONS (1)
  - NONSPECIFIC REACTION [None]
